FAERS Safety Report 11809049 (Version 1)
Quarter: 2015Q4

REPORT INFORMATION
  Report Type: Spontaneous
  Country: FR (occurrence: FR)
  Receive Date: 20151207
  Receipt Date: 20151207
  Transmission Date: 20160305
  Serious: Yes (Hospitalization, Other)
  Sender: FDA-Public Use
  Company Number: FR-PFIZER INC-2015418099

PATIENT
  Age: 60 Year
  Sex: Male

DRUGS (4)
  1. PROPRANOLOL [Concomitant]
     Active Substance: PROPRANOLOL\PROPRANOLOL HYDROCHLORIDE
  2. ALPRAZOLAM. [Concomitant]
     Active Substance: ALPRAZOLAM
  3. LEVOTHYROX [Concomitant]
     Active Substance: LEVOTHYROXINE
  4. TAHOR [Suspect]
     Active Substance: ATORVASTATIN CALCIUM
     Indication: HYPERCHOLESTEROLAEMIA
     Dosage: UNK
     Route: 048
     Dates: end: 20151026

REACTIONS (3)
  - Blood alkaline phosphatase increased [Recovering/Resolving]
  - Transaminases increased [Recovering/Resolving]
  - Jaundice [Recovered/Resolved]

NARRATIVE: CASE EVENT DATE: 20151022
